FAERS Safety Report 4277773-4 (Version None)
Quarter: 2004Q1

REPORT INFORMATION
  Report Type: 
  Country: None (occurrence: None)
  Receive Date: 20040121
  Receipt Date: 20040108
  Transmission Date: 20041129
  Serious: Yes (Death)
  Sender: FDA-Public Use
  Company Number: 2004001474

PATIENT
  Age: 62 Year
  Sex: Male

DRUGS (1)
  1. DOXAZOSIN MESYLATE [Suspect]
     Indication: BENIGN PROSTATIC HYPERPLASIA
     Dosage: 4 MG DAILY ORAL
     Route: 048
     Dates: start: 20030301, end: 20031101

REACTIONS (2)
  - LUNG NEOPLASM [None]
  - NODULE [None]
